FAERS Safety Report 17405136 (Version 1)
Quarter: 2020Q1

REPORT INFORMATION
  Report Type: Report from Study
  Country: CO (occurrence: CO)
  Receive Date: 20200212
  Receipt Date: 20200212
  Transmission Date: 20200409
  Serious: Yes (Hospitalization, Other)
  Sender: FDA-Public Use
  Company Number: CO-ROCHE-2467092

PATIENT
  Sex: Female

DRUGS (2)
  1. BENDAMUSTINE [Concomitant]
     Active Substance: BENDAMUSTINE
  2. RITUXIMAB. [Suspect]
     Active Substance: RITUXIMAB
     Indication: PRODUCT USED FOR UNKNOWN INDICATION
     Route: 065

REACTIONS (5)
  - Dehydration [Unknown]
  - Malaise [Unknown]
  - Renal failure [Unknown]
  - Vomiting [Unknown]
  - Treatment noncompliance [Unknown]
